FAERS Safety Report 23560372 (Version 1)
Quarter: 2024Q1

REPORT INFORMATION
  Report Type: Report from Study
  Country: US (occurrence: None)
  Receive Date: 20240223
  Receipt Date: 20240223
  Transmission Date: 20240410
  Serious: Yes (Other)
  Sender: FDA-Public Use
  Company Number: 2024A041301

PATIENT
  Sex: Male

DRUGS (1)
  1. SYMBICORT [Suspect]
     Active Substance: BUDESONIDE\FORMOTEROL FUMARATE DIHYDRATE
     Dosage: UNKNOWN
     Route: 055

REACTIONS (9)
  - Cardiac disorder [Unknown]
  - Subdural haematoma [Unknown]
  - Asthma [Unknown]
  - Taste disorder [Unknown]
  - Parosmia [Unknown]
  - Retching [Unknown]
  - Product dose omission issue [Unknown]
  - Intentional product misuse [Unknown]
  - Cough [Unknown]
